FAERS Safety Report 7278670-2 (Version None)
Quarter: 2011Q1

REPORT INFORMATION
  Report Type: 
  Country: None (occurrence: None)
  Receive Date: 20110207
  Receipt Date: 20110204
  Transmission Date: 20110831
  Serious: No
  Sender: FDA-Public Use
  Company Number: US-PFIZER INC-2011026245

PATIENT
  Sex: Male
  Weight: 72.562 kg

DRUGS (5)
  1. HYDROCHLOROTHIAZIDE [Concomitant]
     Dosage: UNK
  2. NORVASC [Concomitant]
     Dosage: UNK
  3. AMLODIPINE BESYLATE [Suspect]
     Indication: HYPERTENSION
     Dosage: 5 MG, 2X/DAY
     Route: 048
  4. ALTACE [Concomitant]
     Dosage: UNK
  5. RAMIPRIL [Concomitant]
     Dosage: UNK

REACTIONS (1)
  - BLOOD PRESSURE INCREASED [None]
